FAERS Safety Report 10329000 (Version 2)
Quarter: 2014Q3

REPORT INFORMATION
  Report Type: Spontaneous
  Country: IT (occurrence: IT)
  Receive Date: 20140721
  Receipt Date: 20140910
  Transmission Date: 20150326
  Serious: Yes (Hospitalization)
  Sender: FDA-Public Use
  Company Number: IT-SA-2014SA093416

PATIENT
  Age: 52 Year
  Sex: Female

DRUGS (1)
  1. FERLIXIT [Suspect]
     Active Substance: FERROUS GLUCONATE
     Indication: IRON DEFICIENCY ANAEMIA
     Dosage: 2 UNIT DOSAGE TOTAL?SOLUTION FOR ORAL USE AND INTRAVENOUS INFUSION DOSE:2 UNIT(S)
     Route: 042
     Dates: start: 20140704, end: 20140704

REACTIONS (6)
  - Gait disturbance [Unknown]
  - Spinal pain [Unknown]
  - Back pain [Unknown]
  - Gait disturbance [Unknown]
  - Joint swelling [Unknown]
  - Joint swelling [Unknown]

NARRATIVE: CASE EVENT DATE: 20140704
